FAERS Safety Report 6284384-8 (Version None)
Quarter: 2009Q3

REPORT INFORMATION
  Report Type: 
  Country: None (occurrence: None)
  Receive Date: 20090727
  Receipt Date: 20090717
  Transmission Date: 20100115
  Serious: Yes (Hospitalization)
  Sender: FDA-Public Use
  Company Number: TW-ROCHE-604196

PATIENT
  Sex: Male
  Weight: 65 kg

DRUGS (11)
  1. INTERFERON ALFA-2A [Suspect]
     Indication: RENAL CELL CARCINOMA
     Dosage: DOSE: 6HU.  FREQUENCY: TIW
     Route: 058
     Dates: start: 20081210, end: 20090330
  2. INTERFERON ALFA-2A [Suspect]
     Dosage: DOSE: 6HU.  FREQUENCY: TIW, LOT NUMBER: 2008P1296
     Route: 058
     Dates: end: 20090716
  3. BEVACIZUMAB [Suspect]
     Indication: RENAL CELL CARCINOMA
     Dosage: FREQUENCY: BIW.  ROUTE: IVF
     Route: 042
     Dates: start: 20081210, end: 20090330
  4. BEVACIZUMAB [Suspect]
     Dosage: FREQUENCY: BIW.  ROUTE: IV, LOT NUMBER: 2008P1297
     Route: 042
     Dates: end: 20090716
  5. ACETAMINOPHEN [Concomitant]
     Indication: PROPHYLAXIS
     Dosage: INDICATION: PROPHYLAXIS OF ^FLU-LIKE^ SYMPTOMS.  FREQUENCY: TIW
     Route: 048
     Dates: start: 20081210
  6. COLCHICINE [Concomitant]
     Indication: GOUT
     Dosage: FREQUENCY: BID
     Route: 048
     Dates: start: 20070913, end: 20090716
  7. BENZBROMARON [Concomitant]
     Indication: GOUT
     Dosage: FREQUENCY: QD
     Route: 048
     Dates: start: 20060713, end: 20090716
  8. SCANOL [Concomitant]
  9. IRBESARTAN [Concomitant]
     Indication: HYPERTENSION
     Dates: start: 20081211
  10. IRBESARTAN [Concomitant]
     Indication: HYPERTENSION
     Route: 048
     Dates: start: 20081213, end: 20090716
  11. TRAMADOL [Concomitant]
     Indication: BONE PAIN
     Route: 048
     Dates: start: 20090708, end: 20090716

REACTIONS (6)
  - ARTERIOSCLEROSIS CORONARY ARTERY [None]
  - HAEMORRHAGIC STROKE [None]
  - HEADACHE [None]
  - PAIN [None]
  - THALAMIC INFARCTION [None]
  - UPPER GASTROINTESTINAL HAEMORRHAGE [None]
